FAERS Safety Report 6782714-1 (Version None)
Quarter: 2010Q2

REPORT INFORMATION
  Report Type: 
  Country: None (occurrence: None)
  Receive Date: 20100621
  Receipt Date: 20100618
  Transmission Date: 20101027
  Serious: Yes (Hospitalization)
  Sender: FDA-Public Use
  Company Number: KR-ALLERGAN-1007985US

PATIENT
  Age: 45 Year
  Sex: Male

DRUGS (2)
  1. BOTOX [Suspect]
     Indication: BACK PAIN
     Dosage: 30 UNITS, SINGLE
     Route: 030
     Dates: start: 20100607, end: 20100607
  2. BOTOX [Suspect]
     Dosage: 50 UNITS, SINGLE
     Route: 030
     Dates: start: 20100614, end: 20100614

REACTIONS (4)
  - ASTHENIA [None]
  - DRUG INEFFECTIVE [None]
  - DYSPNOEA [None]
  - PALPITATIONS [None]
